FAERS Safety Report 12937845 (Version 2)
Quarter: 2016Q4

REPORT INFORMATION
  Report Type: Spontaneous
  Country: CN (occurrence: CN)
  Receive Date: 20161114
  Receipt Date: 20161116
  Transmission Date: 20170207
  Serious: Yes (Hospitalization)
  Sender: FDA-Public Use
  Company Number: CN-PFIZER INC-2016523002

PATIENT
  Age: 88 Year
  Sex: Female
  Weight: 43 kg

DRUGS (8)
  1. SODIUM CHLORIDE. [Concomitant]
     Active Substance: SODIUM CHLORIDE
     Indication: INFECTION
     Dosage: 100 ML, 2X/DAY
     Route: 041
     Dates: start: 20160830, end: 20160831
  2. SODIUM CHLORIDE. [Concomitant]
     Active Substance: SODIUM CHLORIDE
     Indication: CARDIOVASCULAR DISORDER
  3. 18-AMINO ACID CO [Suspect]
     Active Substance: AMINO ACIDS
     Indication: MALNUTRITION
     Dosage: 250 ML, 1X/DAY
     Route: 041
     Dates: start: 20160830, end: 20160901
  4. ALANYL GLUTAMINE [Suspect]
     Active Substance: ALANYL GLUTAMINE
     Indication: MALNUTRITION
     Dosage: 50 ML, 1X/DAY
     Route: 041
     Dates: start: 20160830, end: 20160901
  5. LIPITOR [Suspect]
     Active Substance: ATORVASTATIN CALCIUM
     Indication: HYPERLIPIDAEMIA
     Dosage: 20 MG, 1X/DAY (QN)
     Route: 048
     Dates: start: 20160830, end: 20160901
  6. XIANBITA [Suspect]
     Active Substance: CEFOPERAZONE\TAZOBACTAM SODIUM
     Indication: INFECTION
     Dosage: 2.5 G, 2X/DAY
     Route: 041
     Dates: start: 20160830, end: 20160831
  7. KELIN^AO [Suspect]
     Active Substance: CINEPAZIDE MALEATE
     Indication: CARDIOVASCULAR DISORDER
     Dosage: 160 MG, 1X/DAY
     Route: 041
     Dates: start: 20160830, end: 20160901
  8. METOPROLOL TARTRATE. [Concomitant]
     Active Substance: METOPROLOL TARTRATE
     Indication: ARRHYTHMIA
     Dosage: 12.5 MG, 2X/DAY

REACTIONS (7)
  - Alpha hydroxybutyrate dehydrogenase increased [Recovering/Resolving]
  - Blood creatine phosphokinase increased [Recovering/Resolving]
  - Aspartate aminotransferase increased [Recovering/Resolving]
  - Blood lactate dehydrogenase increased [Recovering/Resolving]
  - Alanine aminotransferase increased [Recovering/Resolving]
  - Coagulation time prolonged [Recovering/Resolving]
  - Drug-induced liver injury [Recovering/Resolving]

NARRATIVE: CASE EVENT DATE: 20160901
